FAERS Safety Report 4921255-0 (Version None)
Quarter: 2006Q1

REPORT INFORMATION
  Report Type: 
  Country: None (occurrence: None)
  Receive Date: 20060224
  Receipt Date: 20000531
  Transmission Date: 20060701
  Serious: Yes (Hospitalization)
  Sender: FDA-Public Use
  Company Number: US-2000-DE-U0095

PATIENT
  Sex: Female
  Weight: 86.03 kg

DRUGS (7)
  1. PRAMIPEXOLE DIHYDROCHLORIDE [Suspect]
     Route: 048
     Dates: start: 19961205, end: 19981123
  2. TYLENOL (CAPLET) [Concomitant]
     Dates: start: 19961213
  3. FLUOR-OP [Concomitant]
     Dates: start: 19971110
  4. DOMEBORO [Concomitant]
     Dates: start: 19990710, end: 20000715
  5. OXISTAT [Concomitant]
     Dates: start: 19990701, end: 20000715
  6. PREMARIN [Concomitant]
     Dates: start: 19961213
  7. ACCUPRIL [Concomitant]
     Indication: HYPERTENSION
     Route: 048
     Dates: start: 19961213

REACTIONS (2)
  - RENAL CELL CARCINOMA STAGE UNSPECIFIED [None]
  - RENAL MASS [None]
